FAERS Safety Report 5386894-4 (Version None)
Quarter: 2007Q3

REPORT INFORMATION
  Report Type: 
  Country: None (occurrence: None)
  Receive Date: 20070713
  Receipt Date: 20070704
  Transmission Date: 20080115
  Serious: Yes (Hospitalization, Other)
  Sender: FDA-Public Use
  Company Number: BR-PFIZER INC-2007051095

PATIENT
  Sex: Female

DRUGS (5)
  1. CHAMPIX [Suspect]
     Indication: SMOKING CESSATION THERAPY
     Route: 048
  2. TRILEPTAL [Concomitant]
     Route: 048
  3. ALPRAZOLAM [Concomitant]
     Dosage: DAILY DOSE:2MG
     Route: 048
  4. ANGIPRESS [Concomitant]
     Route: 048
  5. CINNARIZINE [Concomitant]
     Route: 048

REACTIONS (12)
  - ABDOMINAL PAIN UPPER [None]
  - ANOREXIA [None]
  - BEDRIDDEN [None]
  - CONSTIPATION [None]
  - DIZZINESS [None]
  - DYSPNOEA [None]
  - HEADACHE [None]
  - INFECTION [None]
  - INSOMNIA [None]
  - NAUSEA [None]
  - NIGHTMARE [None]
  - TREMOR [None]
